FAERS Safety Report 15373518 (Version 1)
Quarter: 2018Q3

REPORT INFORMATION
  Report Type: Spontaneous
  Country: US (occurrence: US)
  Receive Date: 20180912
  Receipt Date: 20180912
  Transmission Date: 20181010
  Serious: No
  Sender: FDA-Public Use
  Company Number: US-BIOGEN-2018BI00624798

PATIENT
  Age: 49 Year
  Sex: Female

DRUGS (2)
  1. TECFIDERA [Suspect]
     Active Substance: DIMETHYL FUMARATE
     Indication: MULTIPLE SCLEROSIS
     Dosage: 120MG BID FOR 7 DAYS
     Route: 048
     Dates: start: 20180807
  2. TECFIDERA [Suspect]
     Active Substance: DIMETHYL FUMARATE
     Dosage: 240MG BID AFTER 120MG BID THEREAFTER
     Route: 048

REACTIONS (2)
  - Flushing [Unknown]
  - Overdose [Unknown]

NARRATIVE: CASE EVENT DATE: 20180830
